FAERS Safety Report 8578326-X (Version None)
Quarter: 2012Q2

REPORT INFORMATION
  Report Type: 
  Country: None (occurrence: None)
  Receive Date: 20120423
  Receipt Date: 20100215
  Transmission Date: 20120825
  Serious: Yes (Hospitalization)
  Sender: FDA-Public Use
  Company Number: PHHY2010US09136

PATIENT
  Age: 18 Year
  Sex: Male
  Weight: 75 kg

DRUGS (1)
  1. EXJADE [Suspect]
     Indication: SICKLE CELL ANAEMIA
     Dosage: 500 MG, TID, ORAL
     Route: 048
     Dates: start: 20100204

REACTIONS (1)
  - SICKLE CELL ANAEMIA [None]
